FAERS Safety Report 9658954 (Version 3)
Quarter: 2014Q1

REPORT INFORMATION
  Report Type: Spontaneous
  Country: US (occurrence: US)
  Receive Date: 20131031
  Receipt Date: 20140122
  Transmission Date: 20141002
  Serious: Yes (Other)
  Sender: FDA-Public Use
  Company Number: US-AMGEN-USASP2013069704

PATIENT
  Age: 38 Year
  Sex: Female

DRUGS (7)
  1. ENBREL [Suspect]
     Indication: RHEUMATOID ARTHRITIS
     Dosage: 50 MG WEEKLY
     Route: 065
     Dates: start: 2008
  2. PRENATAL VITAMINS                  /07499601/ [Concomitant]
     Dosage: UNK
     Dates: start: 201104, end: 201112
  3. FOLIC ACID [Concomitant]
     Dosage: UNK
     Dates: start: 201104, end: 201112
  4. ADVAIR [Concomitant]
     Dosage: 50/250 UNK, AS NECESSARY
  5. PROVENTOL [Concomitant]
     Dosage: UNK UNK, AS NECESSARY
  6. FLU [Concomitant]
     Dosage: UNK
  7. PERTUSSIS VACCIN [Concomitant]
     Dosage: UNK

REACTIONS (5)
  - Gestational diabetes [Unknown]
  - Induced labour [Recovered/Resolved]
  - Condition aggravated [Recovered/Resolved]
  - Joint swelling [Recovered/Resolved]
  - Arthralgia [Recovered/Resolved]
